FAERS Safety Report 4941740-5 (Version None)
Quarter: 2006Q1

REPORT INFORMATION
  Report Type: 
  Country: None (occurrence: None)
  Receive Date: 20060308
  Receipt Date: 20060223
  Transmission Date: 20060701
  Serious: Yes (Other)
  Sender: FDA-Public Use
  Company Number: 2006027138

PATIENT
  Age: 76 Year
  Sex: Male
  Weight: 85.2762 kg

DRUGS (5)
  1. VIAGRA [Suspect]
     Indication: ERECTILE DYSFUNCTION
     Dosage: 100 MG (100 MG, AS NECESSARY)
  2. ALTACE [Concomitant]
  3. LIPITOR [Concomitant]
  4. ONE-A-DAY (ASCORBIC ACID, CYANOCOBALAMIN, ERGOCALCIFEROL, NICOTINAMIDE [Concomitant]
  5. FOLIC ACID [Concomitant]

REACTIONS (2)
  - CORONARY ARTERY OCCLUSION [None]
  - MYOCARDIAL INFARCTION [None]
